FAERS Safety Report 25291322 (Version 3)
Quarter: 2025Q4

REPORT INFORMATION
  Report Type: Spontaneous
  Country: US (occurrence: US)
  Receive Date: 20250510
  Receipt Date: 20251016
  Transmission Date: 20260118
  Serious: No
  Sender: SANOFI AVENTIS
  Company Number: US-SA-2025SA119941

PATIENT
  Age: 57 Year
  Sex: Male

DRUGS (1)
  1. DUPIXENT [Suspect]
     Active Substance: DUPILUMAB
     Indication: Dermatitis atopic
     Dosage: 300 MG, QOW
     Route: 058
     Dates: start: 20241116

REACTIONS (7)
  - Dermatitis atopic [Not Recovered/Not Resolved]
  - Rash [Unknown]
  - Rash pruritic [Recovered/Resolved]
  - Product dose omission issue [Unknown]
  - Incorrect product administration duration [Unknown]
  - Accidental exposure to product [Unknown]
  - Exposure via skin contact [Unknown]

NARRATIVE: CASE EVENT DATE: 20250101
